FAERS Safety Report 8601689 (Version 3)
Quarter: 2012Q4

REPORT INFORMATION
  Report Type: 
  Country: US (occurrence: US)
  Receive Date: 20120606
  Receipt Date: 20121128
  Transmission Date: 20130627
  Serious: Yes (Other)
  Sender: FDA-Public Use
  Company Number: US-ACTELION-A-US2011-53353

PATIENT
  Age: 55 Year
  Sex: Male

DRUGS (3)
  1. TRACLEER [Suspect]
     Indication: PULMONARY ARTERIAL HYPERTENSION
     Dosage: 125 mg, bid
     Route: 048
  2. TRACLEER [Suspect]
     Dosage: 62.5 mg, bid
     Route: 048
     Dates: start: 20101117
  3. B12 [Concomitant]

REACTIONS (8)
  - Metastatic neoplasm [Unknown]
  - Chemotherapy [Unknown]
  - Dizziness postural [Unknown]
  - Dizziness [Unknown]
  - Hypotension [Unknown]
  - Fall [Unknown]
  - Joint injury [Unknown]
  - Chest discomfort [Unknown]
